FAERS Safety Report 4278993-5 (Version None)
Quarter: 2004Q1

REPORT INFORMATION
  Report Type: 
  Country: None (occurrence: None)
  Receive Date: 20040126
  Receipt Date: 20030826
  Transmission Date: 20041129
  Serious: Yes (Hospitalization)
  Sender: FDA-Public Use
  Company Number: WAES 0308USA02598

PATIENT
  Age: 51 Year
  Sex: Male
  Weight: 86 kg

DRUGS (4)
  1. MOBIC [Concomitant]
  2. SKELAXIN [Concomitant]
  3. ZANTAC [Concomitant]
  4. VIOXX [Suspect]
     Indication: LIMB INJURY
     Route: 048
     Dates: start: 20010901, end: 20010901

REACTIONS (10)
  - ANGINA UNSTABLE [None]
  - CORONARY ARTERY DISEASE [None]
  - CORONARY ARTERY STENOSIS [None]
  - DIAPHRAGMATIC DISORDER [None]
  - DYSPNOEA [None]
  - ECCHYMOSIS [None]
  - EMOTIONAL DISTRESS [None]
  - FATIGUE [None]
  - GROIN PAIN [None]
  - MYOCARDIAL INFARCTION [None]
